FAERS Safety Report 6067876-6 (Version None)
Quarter: 2009Q1

REPORT INFORMATION
  Report Type: 
  Country: None (occurrence: None)
  Receive Date: 20090203
  Receipt Date: 20090119
  Transmission Date: 20090719
  Serious: Yes (Hospitalization)
  Sender: FDA-Public Use
  Company Number: KV200900110

PATIENT
  Age: 34 Year
  Sex: Male
  Weight: 79.4 kg

DRUGS (4)
  1. ISOSORBIDE MONONITRATE [Suspect]
     Indication: ARTERIAL SPASM
     Dosage: 60 MG, QD, ORAL, 120 MG, QD, ORAL
     Route: 048
     Dates: start: 20080101, end: 20080101
  2. ISOSORBIDE MONONITRATE [Suspect]
     Indication: ARTERIAL SPASM
     Dosage: 60 MG, QD, ORAL, 120 MG, QD, ORAL
     Route: 048
     Dates: start: 20090101
  3. LIPITOR [Concomitant]
  4. ASPIRIN [Concomitant]

REACTIONS (2)
  - ARTERIAL SPASM [None]
  - PRODUCT QUALITY ISSUE [None]
